FAERS Safety Report 4527502-1 (Version None)
Quarter: 2004Q4

REPORT INFORMATION
  Report Type: 
  Country: None (occurrence: None)
  Receive Date: 20041215
  Receipt Date: 20040128
  Transmission Date: 20050328
  Serious: Yes (Hospitalization)
  Sender: FDA-Public Use
  Company Number: 200410205JP

PATIENT
  Age: 72 Year
  Sex: Female
  Weight: 56 kg

DRUGS (12)
  1. ARAVA [Suspect]
     Indication: RHEUMATOID ARTHRITIS
     Route: 048
     Dates: start: 20031226, end: 20040118
  2. PREDNINE [Concomitant]
     Indication: RHEUMATOID ARTHRITIS
     Route: 048
  3. NIFELAT L [Concomitant]
     Indication: HYPERTENSION
     Route: 048
  4. MUCOSOLATE [Concomitant]
     Indication: COUGH
     Route: 048
  5. BIO THREE [Concomitant]
     Indication: STOMACH DISCOMFORT
     Route: 048
  6. KIPRES [Concomitant]
     Indication: ASTHMA
     Route: 048
  7. DIOVAN [Concomitant]
     Indication: HYPERTENSION
     Route: 048
  8. ACTONEL [Concomitant]
     Indication: OSTEOPOROSIS
     Route: 048
  9. FLUTICASONE PROPIONATE [Concomitant]
     Route: 048
  10. GASMOTIN [Concomitant]
     Indication: ASTHMA
     Route: 048
  11. SUVENYL [Concomitant]
     Indication: ARTHRALGIA
     Dosage: ROUTE: INTRAARTICULAR, INTRASYNOVIAL
     Route: 050
  12. NIFELAT [Concomitant]
     Indication: HYPERTENSION
     Route: 048
     Dates: start: 20040115, end: 20040129

REACTIONS (18)
  - ATELECTASIS [None]
  - BLOOD CHOLESTEROL INCREASED [None]
  - BLOOD POTASSIUM DECREASED [None]
  - BLOOD URIC ACID INCREASED [None]
  - C-REACTIVE PROTEIN INCREASED [None]
  - CARDIAC FAILURE CHRONIC [None]
  - CARDIOMEGALY [None]
  - CONDITION AGGRAVATED [None]
  - DECREASED IMMUNE RESPONSIVENESS [None]
  - HAEMOGLOBIN DECREASED [None]
  - HYPERTENSION [None]
  - NEUTROPHIL PERCENTAGE INCREASED [None]
  - PERICARDIAL EFFUSION [None]
  - PNEUMONIA BACTERIAL [None]
  - RESPIRATORY FAILURE [None]
  - STRESS SYMPTOMS [None]
  - STRIDOR [None]
  - WHITE BLOOD CELL COUNT INCREASED [None]
